FAERS Safety Report 9656356 (Version 2)
Quarter: 2013Q4

REPORT INFORMATION
  Report Type: Spontaneous
  Country: US (occurrence: US)
  Receive Date: 20131030
  Receipt Date: 20131216
  Transmission Date: 20140711
  Serious: No
  Sender: FDA-Public Use
  Company Number: US-PFIZER INC-2013307930

PATIENT
  Age: 54 Year
  Sex: Female

DRUGS (2)
  1. XALKORI [Suspect]
     Indication: LUNG NEOPLASM MALIGNANT
     Dosage: 250 MG, 2X/DAY
     Dates: start: 20131003
  2. LISINOPRIL [Suspect]
     Indication: BLOOD PRESSURE INCREASED
     Dosage: UNK

REACTIONS (3)
  - Blood pressure decreased [Recovered/Resolved]
  - Vitreous floaters [Unknown]
  - Dizziness [Unknown]
